FAERS Safety Report 8107900-X (Version None)
Quarter: 2012Q1

REPORT INFORMATION
  Report Type: 
  Country: None (occurrence: None)
  Receive Date: 20120202
  Receipt Date: 20120123
  Transmission Date: 20120608
  Serious: Yes (Death)
  Sender: FDA-Public Use
  Company Number: PL-PFIZER INC-2010030070

PATIENT
  Age: 70 Year
  Sex: Male
  Weight: 115.6 kg

DRUGS (8)
  1. SUNITINIB MALATE [Suspect]
     Indication: PROSTATE CANCER
     Dosage: 37.5 MG, 1X/DAY
     Route: 048
     Dates: start: 20091113, end: 20100307
  2. THEOSPIREX [Concomitant]
     Dosage: UNK
     Dates: start: 20090101
  3. POTASSIUM CHLORIDE [Concomitant]
     Dosage: UNK
     Dates: start: 20090101
  4. POLPRAZOL [Concomitant]
     Dosage: UNK
     Dates: start: 20100101
  5. FUROSEMIDE [Concomitant]
     Dosage: UNK
     Dates: start: 20090101
  6. SPIRONOL [Concomitant]
     Dosage: UNK
     Dates: start: 20090101
  7. PREDNISONE TAB [Suspect]
     Indication: PROSTATE CANCER
     Dosage: 5 MG, 2X/DAY
     Route: 048
     Dates: start: 20091123, end: 20100307
  8. LOPERAMIDE HYDROCHLORIDE [Concomitant]
     Dosage: UNK
     Dates: start: 20100101

REACTIONS (1)
  - DEATH [None]
